FAERS Safety Report 10154644 (Version 3)
Quarter: 2014Q2

REPORT INFORMATION
  Report Type: Spontaneous
  Country: DK (occurrence: DK)
  Receive Date: 20140506
  Receipt Date: 20140611
  Transmission Date: 20141212
  Serious: Yes (Other)
  Sender: FDA-Public Use
  Company Number: DK-NOVOPROD-401511

PATIENT
  Age: 71 Year
  Sex: Female
  Weight: 62 kg

DRUGS (2)
  1. VAGIFEM LOW DOSE [Suspect]
     Indication: VULVOVAGINAL DRYNESS
     Dosage: 10 UG (2 TO 3 TIMES WEEKLY, DECREASED DOSE)
     Route: 065
     Dates: start: 201310, end: 20140402
  2. VAGIFEM LOW DOSE [Suspect]
     Dosage: DOSE INCREASED
     Route: 065

REACTIONS (3)
  - Uterine cancer [Unknown]
  - Vulvovaginal pruritus [Recovered/Resolved]
  - Vaginal discharge [Recovered/Resolved]
